FAERS Safety Report 7202858-X (Version None)
Quarter: 2010Q4

REPORT INFORMATION
  Report Type: 
  Country: None (occurrence: None)
  Receive Date: 20101229
  Receipt Date: 20101216
  Transmission Date: 20110411
  Serious: Yes (Hospitalization, Other)
  Sender: FDA-Public Use
  Company Number: BG-TEVA-261012ISR

PATIENT
  Sex: Female
  Weight: 115 kg

DRUGS (3)
  1. WARFARIN [Suspect]
     Route: 048
     Dates: start: 20081202, end: 20090428
  2. ENALAPRIL MALEATE [Concomitant]
     Indication: HYPERTENSION
     Route: 048
  3. SERETIDE [Concomitant]
     Indication: ASTHMA
     Dosage: STRENGTH: 50/250 MCG; DAILY DOSE: 100/500 MCG

REACTIONS (3)
  - DUODENAL ULCER [None]
  - HAEMORRHAGIC ANAEMIA [None]
  - MELAENA [None]
